FAERS Safety Report 14996489 (Version 1)
Quarter: 2018Q2

REPORT INFORMATION
  Report Type: Spontaneous
  Country: AU (occurrence: AU)
  Receive Date: 20180611
  Receipt Date: 20180611
  Transmission Date: 20180711
  Serious: Yes (Other)
  Sender: FDA-Public Use
  Company Number: AU-MYLANLABS-2018M1037272

PATIENT
  Sex: Female

DRUGS (1)
  1. ZOPRAL ODT [Suspect]
     Active Substance: LANSOPRAZOLE
     Indication: GASTROOESOPHAGEAL REFLUX DISEASE
     Dosage: UNK

REACTIONS (5)
  - Retching [Unknown]
  - Product use complaint [Unknown]
  - Frustration tolerance decreased [Unknown]
  - Choking [Unknown]
  - Condition aggravated [Unknown]
